FAERS Safety Report 11883153 (Version 1)
Quarter: 2015Q4

REPORT INFORMATION
  Report Type: Report from Study
  Country: US (occurrence: US)
  Receive Date: 20151231
  Receipt Date: 20151231
  Transmission Date: 20160305
  Serious: Yes (Hospitalization)
  Sender: FDA-Public Use
  Company Number: US-BIOGEN-2015BI074490

PATIENT
  Sex: Female

DRUGS (1)
  1. TYSABRI [Suspect]
     Active Substance: NATALIZUMAB
     Indication: MULTIPLE SCLEROSIS
     Route: 042
     Dates: start: 20150318, end: 20150415

REACTIONS (4)
  - Feeling abnormal [Recovered/Resolved]
  - Hepatic failure [Unknown]
  - Jaundice [Recovered/Resolved]
  - Adverse drug reaction [Recovered/Resolved]
